FAERS Safety Report 4354264-3 (Version None)
Quarter: 2004Q2

REPORT INFORMATION
  Report Type: 
  Country: None (occurrence: None)
  Receive Date: 20040506
  Receipt Date: 20040426
  Transmission Date: 20050107
  Serious: Yes (Other)
  Sender: FDA-Public Use
  Company Number: PHEH2004US04634

PATIENT
  Age: 50 Year
  Sex: Female

DRUGS (2)
  1. VIVELLE-DOT [Suspect]
     Indication: MENOPAUSAL SYMPTOMS
     Dosage: 0.0375MG, TWICE WEEKLY
     Route: 062
     Dates: start: 20020101, end: 20040201
  2. VIVELLE-DOT [Suspect]
     Dosage: .05 MG, TWICE WEEKLY
     Route: 062
     Dates: start: 20040421

REACTIONS (4)
  - ABDOMINAL DISTENSION [None]
  - COELIAC DISEASE [None]
  - FLATULENCE [None]
  - HYSTERECTOMY [None]
